FAERS Safety Report 11168571 (Version 1)
Quarter: 2015Q2

REPORT INFORMATION
  Report Type: Spontaneous
  Country: US (occurrence: US)
  Receive Date: 20150605
  Receipt Date: 20150605
  Transmission Date: 20150821
  Serious: Yes (Other)
  Sender: FDA-Public Use
  Company Number: US-PFIZER INC-2015188380

PATIENT
  Sex: Female
  Weight: 90 kg

DRUGS (1)
  1. CELEBREX [Suspect]
     Active Substance: CELECOXIB
     Indication: MYOSITIS
     Dosage: UNK

REACTIONS (2)
  - Abasia [Unknown]
  - Cerebrovascular accident [Unknown]
